FAERS Safety Report 8180900-X (Version None)
Quarter: 2012Q1

REPORT INFORMATION
  Report Type: 
  Country: None (occurrence: None)
  Receive Date: 20120302
  Receipt Date: 20120227
  Transmission Date: 20120608
  Serious: Yes (Other)
  Sender: FDA-Public Use
  Company Number: US-FRI-1000028733

PATIENT
  Sex: Male
  Weight: 69.54 kg

DRUGS (12)
  1. ATROVENT [Concomitant]
     Indication: CHRONIC OBSTRUCTIVE PULMONARY DISEASE
     Route: 045
  2. ADVAIR DISKUS 100/50 [Concomitant]
     Indication: RESPIRATORY THERAPY
     Dosage: 1000 MG
     Route: 045
  3. MUCINEX [Concomitant]
     Indication: ILL-DEFINED DISORDER
     Dosage: 1200 MG
  4. VFEND [Concomitant]
     Indication: ASPERGILLOSIS
     Dosage: 400 MG
     Route: 048
  5. POTASSIUM CHLORIDE [Concomitant]
     Indication: SUPPLEMENTATION THERAPY
     Dosage: 20 MEQ
     Route: 048
  6. ASPIRIN [Concomitant]
     Indication: CEREBROVASCULAR ACCIDENT
     Dosage: 325 MG
     Route: 048
  7. VITAMIN D [Concomitant]
     Dosage: 2000 IU
     Route: 048
  8. VITAMIN B-12 [Concomitant]
     Indication: VITAMIN B12 DEFICIENCY
     Dosage: 1000 UG
     Route: 048
  9. LASIX [Concomitant]
     Indication: OEDEMA PERIPHERAL
     Dosage: 20 MG
     Route: 048
  10. IPRATROPIUM BROMIDE [Concomitant]
     Indication: CHRONIC OBSTRUCTIVE PULMONARY DISEASE
     Route: 045
  11. DALIRESP [Suspect]
     Dosage: 500 MCG
     Route: 048
     Dates: start: 20120106, end: 20120127
  12. DALIRESP [Suspect]
     Indication: CHRONIC OBSTRUCTIVE PULMONARY DISEASE
     Dosage: 500 MCG
     Route: 048
     Dates: start: 20120128, end: 20120202

REACTIONS (6)
  - SUICIDAL IDEATION [None]
  - MENTAL STATUS CHANGES [None]
  - INSOMNIA [None]
  - DECREASED APPETITE [None]
  - MUSCULAR WEAKNESS [None]
  - LETHARGY [None]
